FAERS Safety Report 16846394 (Version 1)
Quarter: 2019Q3

REPORT INFORMATION
  Report Type: Report from Study
  Country: IT (occurrence: IT)
  Receive Date: 20190924
  Receipt Date: 20190924
  Transmission Date: 20191005
  Serious: Yes (Other)
  Sender: FDA-Public Use
  Company Number: IT-GLAXOSMITHKLINE-IT2019GSK171474

PATIENT
  Sex: Female
  Weight: 1.7 kg

DRUGS (1)
  1. VALACICLOVIR HYDROCHLORIDE [Suspect]
     Active Substance: VALACYCLOVIR HYDROCHLORIDE
     Indication: CONGENITAL CYTOMEGALOVIRUS INFECTION
     Dosage: 8 G, PR DIE
     Route: 064

REACTIONS (12)
  - Cytomegalovirus test positive [Unknown]
  - White matter lesion [Unknown]
  - Foetal exposure during pregnancy [Unknown]
  - Congenital cytomegalovirus infection [Unknown]
  - Cerebral ventricle dilatation [Unknown]
  - Otoacoustic emissions test abnormal [Unknown]
  - Deafness bilateral [Unknown]
  - Delayed myelination [Unknown]
  - Off label use [Unknown]
  - Ultrasound foetal abnormal [Unknown]
  - Premature baby [Unknown]
  - Gamma-glutamyltransferase increased [Unknown]
